FAERS Safety Report 4742131-2 (Version None)
Quarter: 2005Q3

REPORT INFORMATION
  Report Type: 
  Country: None (occurrence: None)
  Receive Date: 20050808
  Receipt Date: 20050801
  Transmission Date: 20060218
  Serious: Yes (Death)
  Sender: FDA-Public Use
  Company Number: 2005108440

PATIENT
  Age: 72 Year
  Sex: Female
  Weight: 84 kg

DRUGS (1)
  1. EPIRUBICIN [Suspect]
     Indication: BREAST CANCER
     Dosage: 93 MG (93 MG, CYCLICAL), INTRAVENOUS
     Route: 042
     Dates: start: 20030625, end: 20030924

REACTIONS (2)
  - CARDIOTOXICITY [None]
  - SUDDEN DEATH [None]
